FAERS Safety Report 8056710-0 (Version None)
Quarter: 2012Q1

REPORT INFORMATION
  Report Type: 
  Country: None (occurrence: None)
  Receive Date: 20120119
  Receipt Date: 20120118
  Transmission Date: 20120608
  Serious: Yes (Other)
  Sender: FDA-Public Use
  Company Number: GR-PFIZER INC-2012013654

PATIENT
  Age: 47 Year
  Sex: Male

DRUGS (1)
  1. XANAX [Suspect]
     Dosage: 0.5 MG, UNK
     Dates: start: 20111201

REACTIONS (2)
  - TOOTH ABSCESS [None]
  - GASTROENTERITIS [None]
